FAERS Safety Report 6096138-6 (Version None)
Quarter: 2009Q1

REPORT INFORMATION
  Report Type: 
  Country: None (occurrence: None)
  Receive Date: 20090227
  Receipt Date: 20081215
  Transmission Date: 20090719
  Serious: Yes (Other)
  Sender: FDA-Public Use
  Company Number: A0747262A

PATIENT
  Age: 36 Year
  Sex: Female

DRUGS (2)
  1. LAMICTAL [Suspect]
     Indication: BIPOLAR DISORDER
     Dosage: 50MG PER DAY
     Route: 048
     Dates: start: 20080625
  2. UNKNOWN [Concomitant]

REACTIONS (5)
  - LIP SWELLING [None]
  - MOUTH ULCERATION [None]
  - ORAL FUNGAL INFECTION [None]
  - STEVENS-JOHNSON SYNDROME [None]
  - VULVOVAGINAL MYCOTIC INFECTION [None]
